FAERS Safety Report 4267530-7 (Version None)
Quarter: 2004Q1

REPORT INFORMATION
  Report Type: 
  Country: None (occurrence: None)
  Receive Date: 20040109
  Receipt Date: 20030812
  Transmission Date: 20041129
  Serious: Yes (Hospitalization, Other)
  Sender: FDA-Public Use
  Company Number: US-GLAXOSMITHKLINE-A0420811A

PATIENT
  Age: 51 Year
  Sex: Female

DRUGS (4)
  1. WELLBUTRIN [Suspect]
     Indication: DEPRESSION
     Dosage: 75MG PER DAY
     Route: 048
  2. SYNTHROID [Concomitant]
  3. DETROL [Concomitant]
  4. METHYLPREDNISOLONE [Concomitant]

REACTIONS (5)
  - COMA [None]
  - CONFUSIONAL STATE [None]
  - CONVULSION [None]
  - DYSPNOEA [None]
  - SOMNOLENCE [None]
